FAERS Safety Report 4590244-0 (Version None)
Quarter: 2005Q1

REPORT INFORMATION
  Report Type: 
  Country: None (occurrence: None)
  Receive Date: 20050224
  Receipt Date: 20050217
  Transmission Date: 20050727
  Serious: Yes (Life-Threatening)
  Sender: FDA-Public Use
  Company Number: 200511492GDDC

PATIENT
  Age: 75 Year
  Sex: Male
  Weight: 76 kg

DRUGS (14)
  1. CODE UNBROKEN [Suspect]
     Indication: MYOCARDIAL INFARCTION
     Dosage: DOSE: ENOX/PLACEBO BOLUS A NOT GIVEN
  2. ASPIRIN [Suspect]
     Indication: MYOCARDIAL INFARCTION
     Route: 048
     Dates: start: 19940101
  3. ACTIVASE [Suspect]
     Indication: MYOCARDIAL INFARCTION
     Route: 042
     Dates: start: 20050209, end: 20050209
  4. AMIODARONE HCL [Concomitant]
     Indication: ARRHYTHMIA
     Route: 048
     Dates: start: 20040301, end: 20050209
  5. AMIODARONE HCL [Concomitant]
     Indication: SUPRAVENTRICULAR TACHYCARDIA
     Route: 048
     Dates: start: 20040301, end: 20050209
  6. ATENOLOL [Concomitant]
     Indication: ANGINA PECTORIS
     Route: 048
     Dates: start: 19990101
  7. ESOMEPRAZOLE [Concomitant]
     Indication: ABDOMINAL DISCOMFORT
     Route: 048
     Dates: start: 20020101
  8. FRUSEMIDE [Concomitant]
     Indication: FLUID RETENTION
     Route: 048
     Dates: start: 20030401
  9. RAMIPRIL [Concomitant]
     Indication: ANGINA PECTORIS
     Route: 048
     Dates: start: 20010101
  10. PARACETAMOL [Concomitant]
     Indication: PAIN
     Route: 048
     Dates: start: 20050209
  11. NICORANDIL [Concomitant]
     Indication: ANGINA PECTORIS
     Route: 048
     Dates: start: 20010101
  12. VENLAFAXINE HCL [Concomitant]
     Indication: DEPRESSION
     Route: 048
     Dates: start: 20020301
  13. SIMVASTATIN [Concomitant]
     Indication: BLOOD CHOLESTEROL INCREASED
     Route: 048
     Dates: start: 20010101
  14. MORPHINE [Concomitant]
     Indication: PAIN
     Route: 042
     Dates: start: 20050209, end: 20050209

REACTIONS (2)
  - ATRIAL FIBRILLATION [None]
  - CARDIOGENIC SHOCK [None]
